FAERS Safety Report 14528537 (Version 2)
Quarter: 2018Q1

REPORT INFORMATION
  Report Type: Report from Study
  Country: None (occurrence: BE)
  Receive Date: 20180214
  Receipt Date: 20180228
  Transmission Date: 20180509
  Serious: Yes (Hospitalization)
  Sender: FDA-Public Use
  Company Number: BE-ABBVIE-17K-013-2200967-00

PATIENT
  Sex: Male

DRUGS (11)
  1. PROLOPA 125 HBS [Concomitant]
     Route: 048
  2. DUODOPA [Suspect]
     Active Substance: CARBIDOPA\LEVODOPA
     Dosage: MD=5ML?CD=2.2ML/HR DURING 16HRS?ED=1ML
     Route: 050
     Dates: start: 20180206, end: 20180209
  3. MIRAPEXIN [Suspect]
     Active Substance: PRAMIPEXOLE
     Indication: PRODUCT USED FOR UNKNOWN INDICATION
     Route: 065
  4. DUODOPA [Suspect]
     Active Substance: CARBIDOPA\LEVODOPA
     Dosage: MD=5.5ML?CD=2.6ML/HR DURING 16HRS?ED=1ML
     Route: 050
     Dates: start: 20180209, end: 201802
  5. AMANTADINE. [Suspect]
     Active Substance: AMANTADINE HYDROCHLORIDE
     Indication: PRODUCT USED FOR UNKNOWN INDICATION
     Route: 065
     Dates: start: 2017
  6. PROLOPA 125 HBS [Concomitant]
     Indication: PARKINSON^S DISEASE
     Route: 048
  7. DUODOPA [Suspect]
     Active Substance: CARBIDOPA\LEVODOPA
     Dosage: MD=8ML??CD=3.3ML/HR DURING 16HRS ??ED=1.7ML
     Route: 050
     Dates: start: 20161207, end: 20171213
  8. DUODOPA [Suspect]
     Active Substance: CARBIDOPA\LEVODOPA
     Dosage: MD=7ML??CD=2.9ML/HR DURING 16HRS ??ED=1.5ML
     Route: 050
     Dates: start: 20171213, end: 20180206
  9. DUODOPA [Suspect]
     Active Substance: CARBIDOPA\LEVODOPA
     Dosage: DOSES CONTINUOUSLY MONITORED AND ADAPTED
     Route: 050
     Dates: start: 20140730, end: 20161207
  10. DUODOPA [Suspect]
     Active Substance: CARBIDOPA\LEVODOPA
     Indication: PARKINSON^S DISEASE
     Dosage: MD=8ML??CD=2.2ML/HR DURING 16HRS ??ED=1.5ML
     Route: 050
     Dates: start: 20140728, end: 20140730
  11. MIRAPEXIN [Suspect]
     Active Substance: PRAMIPEXOLE
     Route: 065

REACTIONS (9)
  - Aggression [Unknown]
  - Dementia [Unknown]
  - On and off phenomenon [Recovering/Resolving]
  - Confusional state [Unknown]
  - Agitation [Unknown]
  - Dyskinesia [Recovering/Resolving]
  - Weight decreased [Unknown]
  - Intentional medical device removal by patient [Unknown]
  - Hypophagia [Unknown]
